FAERS Safety Report 19431797 (Version 1)
Quarter: 2021Q2

REPORT INFORMATION
  Report Type: Report from Study
  Country: US (occurrence: US)
  Receive Date: 20210617
  Receipt Date: 20210617
  Transmission Date: 20210717
  Serious: Yes (Other)
  Sender: FDA-Public Use
  Company Number: US-MYLANLABS-2021M1035346

PATIENT

DRUGS (3)
  1. CRENIGACESTAT. [Suspect]
     Active Substance: CRENIGACESTAT
     Indication: NEOPLASM MALIGNANT
     Dosage: 50 MILLIGRAM, CYCLE, THREE TIMES A WEEK IN A 28?DAY CYCLE
     Route: 048
  2. CRENIGACESTAT. [Suspect]
     Active Substance: CRENIGACESTAT
     Dosage: 125 MILLIGRAM, CYCLE, THREE TIMES A WEEK IN A 28?DAY CYCLE
     Route: 048
  3. DEXAMETHASONE. [Suspect]
     Active Substance: DEXAMETHASONE
     Indication: NEOPLASM MALIGNANT
     Dosage: 125 MILLIGRAM, ON DAYS 1 TO 5 EVERY OTHER WEEK IN A 28?DAY CYCLE.
     Route: 048

REACTIONS (1)
  - Diarrhoea [Unknown]
